FAERS Safety Report 5724975-3 (Version None)
Quarter: 2008Q2

REPORT INFORMATION
  Report Type: 
  Country: None (occurrence: None)
  Receive Date: 20080430
  Receipt Date: 20080430
  Transmission Date: 20081010
  Serious: Yes (Life-Threatening, Hospitalization, Disabling)
  Sender: FDA-Public Use
  Company Number: None

PATIENT

DRUGS (1)
  1. SINGULAIR [Suspect]

REACTIONS (5)
  - ANXIETY [None]
  - DEPRESSION [None]
  - EDUCATIONAL PROBLEM [None]
  - SLEEP DISORDER [None]
  - SOCIAL FEAR [None]
